FAERS Safety Report 10102289 (Version 2)
Quarter: 2014Q2

REPORT INFORMATION
  Report Type: Spontaneous
  Country: JP (occurrence: JP)
  Receive Date: 20140424
  Receipt Date: 20140507
  Transmission Date: 20141212
  Serious: Yes (Other)
  Sender: FDA-Public Use
  Company Number: JP-ROCHE-1386730

PATIENT
  Age: 66 Year
  Sex: Female

DRUGS (9)
  1. AVASTIN [Suspect]
     Indication: BREAST CANCER
     Route: 041
     Dates: start: 20131128, end: 20131128
  2. AVASTIN [Suspect]
     Indication: BREAST CANCER
     Route: 041
     Dates: start: 20131212, end: 20131212
  3. PACLITAXEL [Suspect]
     Indication: BREAST CANCER
     Dosage: DOSAGE IS UNCERTAIN.
     Route: 041
     Dates: start: 20131128, end: 20131128
  4. PACLITAXEL [Suspect]
     Indication: BREAST CANCER
     Route: 041
     Dates: start: 20131205, end: 20131205
  5. PACLITAXEL [Suspect]
     Indication: BREAST CANCER
     Dosage: DOSAGE IS UNCERTAIN.
     Route: 041
     Dates: start: 20131212, end: 20131212
  6. LEVEMIR [Concomitant]
     Indication: DIABETES MELLITUS
     Dosage: [NEMUMAE]
     Route: 065
     Dates: start: 20131107
  7. APIDRA [Concomitant]
     Indication: DIABETES MELLITUS
     Dosage: 8-8-6 UNITS (MORNING - DAYTIME - EVENING)
     Route: 065
     Dates: start: 20131107
  8. EQUA [Concomitant]
     Indication: DIABETES MELLITUS
     Route: 048
     Dates: end: 20131228
  9. NASEA [Concomitant]
     Indication: PROPHYLAXIS OF NAUSEA AND VOMITING
     Dosage: DOSAGE IS UNCERTAIN. ?AT THE VOMITURITION
     Route: 048
     Dates: start: 20131212

REACTIONS (4)
  - Obstruction gastric [Unknown]
  - Gastric ulcer [Unknown]
  - Vomiting [Unknown]
  - Anaemia [Unknown]
